FAERS Safety Report 6673696-1 (Version None)
Quarter: 2010Q2

REPORT INFORMATION
  Report Type: 
  Country: None (occurrence: None)
  Receive Date: 20100408
  Receipt Date: 20100330
  Transmission Date: 20101027
  Serious: Yes (Other)
  Sender: FDA-Public Use
  Company Number: US-AMGEN-QUU402908

PATIENT
  Sex: Female

DRUGS (5)
  1. ENBREL [Suspect]
     Indication: RHEUMATOID ARTHRITIS
  2. PREDNISONE TAB [Concomitant]
  3. SEROQUEL [Concomitant]
  4. PLAQUENIL [Concomitant]
  5. VALIUM [Concomitant]

REACTIONS (2)
  - MENTAL STATUS CHANGES [None]
  - VISION BLURRED [None]
